FAERS Safety Report 8582418 (Version 3)
Quarter: 2012Q4

REPORT INFORMATION
  Report Type: 
  Country: US (occurrence: US)
  Receive Date: 20120529
  Receipt Date: 20121119
  Transmission Date: 20130627
  Serious: Yes (Disabling, Other)
  Sender: FDA-Public Use
  Company Number: US-BAYER-2012-047438

PATIENT
  Age: 23 Year
  Sex: Female
  Weight: 52.15 kg

DRUGS (5)
  1. YASMIN [Suspect]
     Indication: PREMENSTRUAL SYNDROME
     Dosage: 1 DF, QD
     Route: 048
     Dates: start: 200502, end: 200808
  2. YASMIN [Suspect]
     Indication: MENSTRUAL CYCLE MANAGEMENT
  3. OCELLA [Suspect]
     Indication: PREMENSTRUAL SYNDROME
     Dosage: UNK
     Dates: start: 2005, end: 2008
  4. OCELLA [Suspect]
     Indication: MENSTRUAL CYCLE MANAGEMENT
     Dosage: UNK
     Dates: start: 200808, end: 200812
  5. TYLENOL [Concomitant]
     Indication: HEADACHE

REACTIONS (10)
  - Retinal vascular thrombosis [None]
  - Visual acuity reduced [None]
  - Injury [None]
  - Blindness [None]
  - Pain [None]
  - Deformity [None]
  - Anxiety [None]
  - Anhedonia [None]
  - Off label use [None]
  - Retinal scar [None]
